FAERS Safety Report 8326922-7 (Version None)
Quarter: 2012Q2

REPORT INFORMATION
  Report Type: 
  Country: None (occurrence: None)
  Receive Date: 20120501
  Receipt Date: 20120417
  Transmission Date: 20120825
  Serious: Yes (Other)
  Sender: FDA-Public Use
  Company Number: CHPA2012US009535

PATIENT
  Sex: Female

DRUGS (2)
  1. DRUG THERAPY NOS [Concomitant]
     Indication: ASTHMA
     Dosage: UNK
  2. EXCEDRIN EXTRA STRENGTH TABLETS [Suspect]
     Indication: ABDOMINAL PAIN UPPER
     Dosage: 1-2 DF, PRN
     Route: 048

REACTIONS (7)
  - BRONCHITIS [None]
  - DIZZINESS [None]
  - INCOHERENT [None]
  - SOMNOLENCE [None]
  - GAIT DISTURBANCE [None]
  - ABNORMAL BEHAVIOUR [None]
  - UNDERDOSE [None]
